FAERS Safety Report 18963229 (Version 1)
Quarter: 2021Q1

REPORT INFORMATION
  Report Type: Spontaneous
  Country: US (occurrence: US)
  Receive Date: 20210303
  Receipt Date: 20210303
  Transmission Date: 20210420
  Serious: Yes (Other)
  Sender: FDA-Public Use
  Company Number: None

PATIENT
  Age: 46 Year
  Sex: Male
  Weight: 69.75 kg

DRUGS (9)
  1. WAL?PHED D 120MG [Concomitant]
  2. ZOCOR 40MG [Concomitant]
  3. FEXODENADINE 180MG [Concomitant]
  4. METOPROLOL SUCCINATE ER [Suspect]
     Active Substance: METOPROLOL SUCCINATE
     Indication: HYPERTENSION
     Dosage: ?          QUANTITY:180 TABLET(S);?
     Route: 048
     Dates: start: 20210219, end: 20210301
  5. BENICAR 5MG [Concomitant]
  6. LOPERAMIDE 2MG [Concomitant]
     Active Substance: LOPERAMIDE
  7. PROSCAR [Concomitant]
     Active Substance: FINASTERIDE
  8. PAXIL [Concomitant]
     Active Substance: PAROXETINE HYDROCHLORIDE
  9. TESTOSTERONE CYPRIONATE 100MG [Concomitant]

REACTIONS (7)
  - Hypertension [None]
  - Product substitution issue [None]
  - Dyspnoea [None]
  - Palpitations [None]
  - Headache [None]
  - Suspected product quality issue [None]
  - Pollakiuria [None]

NARRATIVE: CASE EVENT DATE: 20210301
